FAERS Safety Report 4896412-2 (Version None)
Quarter: 2006Q1

REPORT INFORMATION
  Report Type: 
  Country: None (occurrence: None)
  Receive Date: 20060126
  Receipt Date: 20060113
  Transmission Date: 20060701
  Serious: Yes (Hospitalization, Other)
  Sender: FDA-Public Use
  Company Number: 2006009146

PATIENT
  Age: 56 Year
  Sex: Male

DRUGS (1)
  1. SOMAVERT [Suspect]
     Indication: ACROMEGALY
     Dosage: 30 MG (DAILY)
     Dates: start: 20040101

REACTIONS (6)
  - HEADACHE [None]
  - NERVE COMPRESSION [None]
  - OPTIC NERVE INJURY [None]
  - PITUITARY TUMOUR BENIGN [None]
  - TUMOUR NECROSIS [None]
  - WEIGHT INCREASED [None]
